FAERS Safety Report 24834411 (Version 2)
Quarter: 2025Q1

REPORT INFORMATION
  Report Type: Spontaneous
  Country: US (occurrence: US)
  Receive Date: 20250113
  Receipt Date: 20250120
  Transmission Date: 20250409
  Serious: No
  Sender: ABBVIE
  Company Number: US-ABBVIE-6081861

PATIENT
  Age: 71 Year
  Sex: Female
  Weight: 69.853 kg

DRUGS (4)
  1. SYNTHROID [Suspect]
     Active Substance: LEVOTHYROXINE SODIUM
     Indication: Graves^ disease
     Dosage: 100 MICROGRAM
     Route: 048
  2. SYNTHROID [Suspect]
     Active Substance: LEVOTHYROXINE SODIUM
     Indication: Graves^ disease
     Dosage: 88 MICROGRAM?FORM STRENGTH: 88 MICROGRAM
     Route: 048
     Dates: start: 2006, end: 20250110
  3. SYNTHROID [Suspect]
     Active Substance: LEVOTHYROXINE SODIUM
     Indication: Graves^ disease
     Dosage: 125 MICROGRAM?FORM STRENGTH: 125 MICROGRAM?START DATE TEXT: AROUND 28 YEARS AGO
     Route: 048
  4. IODINE (IODINE) [Concomitant]
     Active Substance: IODINE
     Indication: Graves^ disease
     Route: 065

REACTIONS (9)
  - Malaise [Not Recovered/Not Resolved]
  - Blood cholesterol increased [Recovering/Resolving]
  - Diabetes mellitus [Recovering/Resolving]
  - Hypothyroidism [Not Recovered/Not Resolved]
  - Hypertension [Recovering/Resolving]
  - Drug ineffective [Not Recovered/Not Resolved]
  - Fatigue [Unknown]
  - Blood thyroid stimulating hormone increased [Not Recovered/Not Resolved]
  - Product quality issue [Not Recovered/Not Resolved]

NARRATIVE: CASE EVENT DATE: 20241201
